FAERS Safety Report 5000892-1 (Version None)
Quarter: 2006Q2

REPORT INFORMATION
  Report Type: 
  Country: None (occurrence: None)
  Receive Date: 20060512
  Receipt Date: 20051014
  Transmission Date: 20061013
  Serious: No
  Sender: FDA-Public Use
  Company Number: US-GLAXOSMITHKLINE-A0578295A

PATIENT
  Age: 77 Year
  Sex: Female
  Weight: 45.5 kg

DRUGS (4)
  1. RELAFEN [Suspect]
     Indication: OSTEOARTHRITIS
     Dosage: 500MG TWICE PER DAY
     Route: 048
     Dates: start: 20040101, end: 20051009
  2. ASPIRIN [Concomitant]
     Dosage: 81MG PER DAY
     Route: 048
     Dates: start: 20000101
  3. FLONASE [Concomitant]
     Dosage: 1SPR PER DAY
     Route: 045
     Dates: start: 20050101
  4. IMIPRAMINE [Concomitant]
     Indication: INCONTINENCE
     Dosage: 10MG PER DAY
     Route: 048
     Dates: start: 20040101

REACTIONS (4)
  - DYSPHAGIA [None]
  - DYSPHONIA [None]
  - MUSCULOSKELETAL STIFFNESS [None]
  - PARAESTHESIA [None]
